FAERS Safety Report 6042019-3 (Version None)
Quarter: 2009Q1

REPORT INFORMATION
  Report Type: 
  Country: None (occurrence: None)
  Receive Date: 20090116
  Receipt Date: 20090113
  Transmission Date: 20090719
  Serious: Yes (Life-Threatening)
  Sender: FDA-Public Use
  Company Number: AU-MERCK-0901AUS00040

PATIENT
  Age: 56 Year
  Sex: Male

DRUGS (3)
  1. VYTORIN [Suspect]
     Indication: METABOLIC DISORDER
     Route: 048
     Dates: start: 20070901
  2. IRBESARTAN [Concomitant]
     Route: 048
  3. INSULIN ASPART, BIPHASIC ISOPHANE [INJECTION] [Concomitant]
     Indication: DIABETES MELLITUS
     Route: 065
     Dates: start: 20050101

REACTIONS (2)
  - BACK PAIN [None]
  - PROSTATE CANCER METASTATIC [None]
